FAERS Safety Report 6589206-3 (Version None)
Quarter: 2010Q1

REPORT INFORMATION
  Report Type: 
  Country: None (occurrence: None)
  Receive Date: 20100218
  Receipt Date: 20100215
  Transmission Date: 20100710
  Serious: Yes (Hospitalization)
  Sender: FDA-Public Use
  Company Number: DE-WYE-G05568610

PATIENT
  Sex: Female
  Weight: 75 kg

DRUGS (3)
  1. TAVOR [Suspect]
     Dosage: THERAPEUTIC DOSE REGIMEN UNKNOWN; 50 TABLETS (OVERDOSE AMOUNT 25 MG) ON 12-FEB-2010
     Route: 048
  2. TRUXAL [Suspect]
     Dosage: THERAPEUTIC DOSE REGIMEN UNKNOWN; 26 TABLETS (OVERDOSE AMOUNT 390 MG) ON 12-FEB-2010
     Route: 048
  3. IBUPROFEN [Suspect]
     Dosage: THERAPEUTIC DOSE REGIMEN UNKNOWN; 20 TABLETS (OVERDOSE AMOUNT 16 G) ON 12-FEB-2010
     Route: 048

REACTIONS (3)
  - INTENTIONAL OVERDOSE [None]
  - SOMNOLENCE [None]
  - SUICIDE ATTEMPT [None]
